FAERS Safety Report 24185842 (Version 1)
Quarter: 2024Q3

REPORT INFORMATION
  Report Type: Spontaneous
  Country: US (occurrence: US)
  Receive Date: 20240807
  Receipt Date: 20240807
  Transmission Date: 20241016
  Serious: No
  Sender: PRINSTON PHARMACEUTICAL
  Company Number: US-PRINSTON PHARMACEUTICAL INC.-2024PRN00102

PATIENT
  Sex: Female

DRUGS (1)
  1. CLONAZEPAM [Suspect]
     Active Substance: CLONAZEPAM
     Indication: Sleep disorder
     Dosage: 1 MG
     Route: 065

REACTIONS (7)
  - Feeling abnormal [Unknown]
  - Restlessness [Unknown]
  - Poor quality sleep [Unknown]
  - Middle insomnia [Unknown]
  - Stress [Unknown]
  - Product substitution issue [Unknown]
  - Off label use [Unknown]

NARRATIVE: CASE EVENT DATE: 20240101
